FAERS Safety Report 22147213 (Version 1)
Quarter: 2023Q1

REPORT INFORMATION
  Report Type: Spontaneous
  Country: CA (occurrence: CA)
  Receive Date: 20230328
  Receipt Date: 20230328
  Transmission Date: 20230418
  Serious: Yes (Hospitalization, Other)
  Sender: FDA-Public Use
  Company Number: CA-INCYTE CORPORATION-2023IN001887

PATIENT

DRUGS (1)
  1. PEMAZYRE [Suspect]
     Active Substance: PEMIGATINIB
     Indication: Gastric cancer
     Dosage: 13.5 MILLIGRAM, QD (14 DAYS ON AND 7 DAYS OFF)
     Route: 048
     Dates: start: 20230223

REACTIONS (3)
  - Escherichia sepsis [Unknown]
  - Blood phosphorus increased [Unknown]
  - Off label use [Unknown]

NARRATIVE: CASE EVENT DATE: 20230223
